FAERS Safety Report 12233786 (Version 1)
Quarter: 2016Q2

REPORT INFORMATION
  Report Type: Spontaneous
  Country: US (occurrence: None)
  Receive Date: 20160401
  Receipt Date: 20160401
  Transmission Date: 20160815
  Serious: Yes (Hospitalization)
  Sender: FDA-Public Use
  Company Number: None

PATIENT
  Age: 58 Year
  Sex: Male
  Weight: 81.65 kg

DRUGS (5)
  1. RITALIN [Concomitant]
     Active Substance: METHYLPHENIDATE HYDROCHLORIDE
  2. AMINOPYRADINE 4-AP [Concomitant]
  3. ADVIL [Concomitant]
     Active Substance: IBUPROFEN
  4. BIOTIN [Suspect]
     Active Substance: BIOTIN
     Indication: PROGRESSIVE MULTIPLE SCLEROSIS
     Dosage: IN THE MORNING
     Dates: start: 20160319, end: 20160323
  5. VITAMIN D3 [Concomitant]
     Active Substance: CHOLECALCIFEROL

REACTIONS (3)
  - Seizure [None]
  - Product label on wrong product [None]
  - Cardiac disorder [None]

NARRATIVE: CASE EVENT DATE: 20151222
